FAERS Safety Report 4313794-0 (Version None)
Quarter: 2004Q1

REPORT INFORMATION
  Report Type: 
  Country: None (occurrence: None)
  Receive Date: 20040304
  Receipt Date: 20031120
  Transmission Date: 20041129
  Serious: Yes (Hospitalization)
  Sender: FDA-Public Use
  Company Number: 2003119639

PATIENT
  Age: 13 Year
  Sex: Male
  Weight: 47.4 kg

DRUGS (5)
  1. GEODON [Suspect]
     Indication: ASPERGER'S DISORDER
     Dosage: 60 MG (DAILY), ORAL
     Route: 048
     Dates: start: 20021101
  2. METHYLPHENIDATE HCL [Concomitant]
  3. SERTRALINE HCL [Concomitant]
  4. LANSOPRAZOLE [Concomitant]
  5. METHYLPHENIDATE HCL [Concomitant]

REACTIONS (1)
  - DYSTONIA [None]
